FAERS Safety Report 17496457 (Version 1)
Quarter: 2020Q1

REPORT INFORMATION
  Report Type: Spontaneous
  Country: US (occurrence: US)
  Receive Date: 20200224
  Receipt Date: 20200224
  Transmission Date: 20200409
  Serious: No
  Sender: FDA-Public Use
  Company Number: None

PATIENT
  Sex: Female

DRUGS (1)
  1. HUMIRA [Suspect]
     Active Substance: ADALIMUMAB
     Indication: JUVENILE IDIOPATHIC ARTHRITIS
     Dosage: FREQUENCY: EVERY 14 DAYS
     Route: 058
     Dates: start: 20200212

REACTIONS (8)
  - Musculoskeletal pain [None]
  - Loss of personal independence in daily activities [None]
  - Pain [None]
  - Therapy cessation [None]
  - Decreased appetite [None]
  - Asthenia [None]
  - Arthralgia [None]
  - Headache [None]
